FAERS Safety Report 5477486-7 (Version None)
Quarter: 2007Q4

REPORT INFORMATION
  Report Type: 
  Country: None (occurrence: None)
  Receive Date: 20071002
  Receipt Date: 20070921
  Transmission Date: 20080405
  Serious: Yes (Disabling)
  Sender: FDA-Public Use
  Company Number: 2006-00131

PATIENT
  Age: 60 Year
  Sex: Female
  Weight: 105 kg

DRUGS (15)
  1. VELCADE [Suspect]
     Indication: B-CELL LYMPHOMA
     Dosage: 2.60 MG, INTRAVENOUS
     Route: 042
     Dates: start: 20051130, end: 20051231
  2. RITUXIMAB(RITUXIMAB) INJECTION, 375MG/M2 [Suspect]
     Indication: B-CELL LYMPHOMA
     Dates: start: 20051130
  3. CYCLOPHOSPHAMIDE [Suspect]
     Indication: B-CELL LYMPHOMA
     Dates: start: 20051130
  4. DOXORUBICIN HCL [Suspect]
     Indication: B-CELL LYMPHOMA
     Dates: start: 20051130
  5. VINCRISTINE [Suspect]
     Indication: B-CELL LYMPHOMA
     Dates: start: 20051130
  6. PREDNISONE TAB [Suspect]
     Indication: B-CELL LYMPHOMA
     Dates: start: 20051130
  7. ONDANSETRON HCL [Concomitant]
  8. MESNA [Concomitant]
  9. SOLU-MEDROL [Concomitant]
  10. POLARAMINE [Concomitant]
  11. ACETAMINOPHEN [Concomitant]
  12. BACTRIM [Concomitant]
  13. VALACYCLOVIR HCL [Concomitant]
  14. OMEPRAZOLE [Concomitant]
  15. LASIX [Concomitant]

REACTIONS (7)
  - ACTIVITIES OF DAILY LIVING IMPAIRED [None]
  - HYPOAESTHESIA [None]
  - NEUROPATHY [None]
  - OEDEMA PERIPHERAL [None]
  - PAIN [None]
  - PARAESTHESIA [None]
  - WEIGHT INCREASED [None]
